FAERS Safety Report 4599243-6 (Version None)
Quarter: 2005Q1

REPORT INFORMATION
  Report Type: 
  Country: None (occurrence: None)
  Receive Date: 20050302
  Receipt Date: 20050302
  Transmission Date: 20050727
  Serious: Yes (Other)
  Sender: FDA-Public Use
  Company Number: None

PATIENT
  Age: 67 Year
  Sex: Male

DRUGS (3)
  1. THEOPHYLLINE ER TABS [Suspect]
     Indication: MULTIPLE ALLERGIES
     Dosage: TAKE 1 TABLET DAILY , ON BRAND FOR OVER 6 YEARS, GENERIC FOR SEVERAL MONTHS
  2. THEOPHYLLINE ER TABS [Suspect]
     Indication: WHEEZING
     Dosage: TAKE 1 TABLET DAILY , ON BRAND FOR OVER 6 YEARS, GENERIC FOR SEVERAL MONTHS
  3. COMBIVENT [Concomitant]

REACTIONS (2)
  - PHARMACEUTICAL PRODUCT COMPLAINT [None]
  - WHEEZING [None]
